FAERS Safety Report 4954544-4 (Version None)
Quarter: 2006Q1

REPORT INFORMATION
  Report Type: 
  Country: None (occurrence: None)
  Receive Date: 20060322
  Receipt Date: 20060313
  Transmission Date: 20060701
  Serious: Yes (Hospitalization, Disabling)
  Sender: FDA-Public Use
  Company Number: 2006-01-0964

PATIENT
  Age: 59 Year
  Sex: Male

DRUGS (11)
  1. PEG-INTRON [Suspect]
     Indication: HEPATITIS C
     Dosage: 80 MCG QW SUBCUTANEOUS
     Route: 058
     Dates: start: 20050709, end: 20051116
  2. REBETOL [Suspect]
     Indication: HEPATITIS C
     Dosage: 600 MG ORAL
     Route: 048
     Dates: start: 20050709, end: 20051116
  3. STRONG NEO-MINOPHAGEN C INJECTABLE SOLUTION [Concomitant]
  4. ADELAVIN INJECTABLE SOLUTION [Concomitant]
  5. VOLTAREN [Concomitant]
  6. SLOW-K TABLETS [Concomitant]
  7. GASTER TABLETS [Concomitant]
  8. URSO TABLETS [Concomitant]
  9. HORIZON TABLETS [Concomitant]
  10. NELBON TABLETS [Concomitant]
  11. TETRAMIDE TABLETS [Concomitant]

REACTIONS (13)
  - ALANINE AMINOTRANSFERASE INCREASED [None]
  - ASPARTATE AMINOTRANSFERASE INCREASED [None]
  - BLOOD PRESSURE INCREASED [None]
  - BRAIN OEDEMA [None]
  - CEREBRAL HAEMORRHAGE [None]
  - DYSARTHRIA [None]
  - HAEMATOMA [None]
  - HEMIPLEGIA [None]
  - HEPATIC FUNCTION ABNORMAL [None]
  - HYPOAESTHESIA [None]
  - INTRAVENTRICULAR HAEMORRHAGE [None]
  - LOSS OF CONSCIOUSNESS [None]
  - THALAMUS HAEMORRHAGE [None]
